FAERS Safety Report 17059299 (Version 2)
Quarter: 2020Q1

REPORT INFORMATION
  Report Type: Spontaneous
  Country: CN (occurrence: CN)
  Receive Date: 20191121
  Receipt Date: 20200114
  Transmission Date: 20200409
  Serious: Yes (Life-Threatening, Hospitalization, Other)
  Sender: FDA-Public Use
  Company Number: CN-PFIZER INC-2019498880

PATIENT
  Age: 56 Year
  Sex: Male
  Weight: 46 kg

DRUGS (2)
  1. INLYTA [Suspect]
     Active Substance: AXITINIB
     Dosage: 5 MG, 1X/DAY
     Route: 048
     Dates: start: 20191107, end: 20191111
  2. INLYTA [Suspect]
     Active Substance: AXITINIB
     Indication: RENAL CANCER
     Dosage: 5 MG, 2X/DAY
     Route: 048
     Dates: start: 20191102, end: 20191106

REACTIONS (12)
  - Chest discomfort [Recovering/Resolving]
  - Stomatitis [Recovering/Resolving]
  - Blood pressure decreased [Unknown]
  - Nausea [Recovering/Resolving]
  - Haemoptysis [Recovering/Resolving]
  - Tachypnoea [Recovering/Resolving]
  - Platelet count decreased [Recovering/Resolving]
  - Vomiting [Recovering/Resolving]
  - Mouth haemorrhage [Recovering/Resolving]
  - Petechiae [Unknown]
  - Heart rate increased [Recovering/Resolving]
  - Myalgia [Unknown]

NARRATIVE: CASE EVENT DATE: 201911
